FAERS Safety Report 7936827-9 (Version None)
Quarter: 2011Q4

REPORT INFORMATION
  Report Type: 
  Country: None (occurrence: None)
  Receive Date: 20111123
  Receipt Date: 20111121
  Transmission Date: 20120403
  Serious: No
  Sender: FDA-Public Use
  Company Number: US-PFIZER INC-2011285344

PATIENT
  Age: 77 Year
  Sex: Female
  Weight: 62.585 kg

DRUGS (13)
  1. NEURONTIN [Suspect]
     Indication: HEADACHE
     Dosage: 100 MG, DAILY
     Dates: start: 20110901, end: 20110101
  2. NEURONTIN [Suspect]
     Dosage: 100 MG, 3X/DAY
     Dates: start: 20110101
  3. SPIRONOLACTONE [Concomitant]
     Indication: BLOOD PRESSURE ABNORMAL
     Dosage: UNK
  4. OXYBUTYNIN CHLORIDE [Concomitant]
     Dosage: 5 MG, 3X/DAY
  5. MACROBID [Concomitant]
     Dosage: UNKNOWN DOSE TWO TIMES A DAY
  6. MULTI-VITAMINS [Concomitant]
     Dosage: UNK
  7. PROZAC [Concomitant]
     Dosage: 40 MG, DAILY
  8. TRAZODONE [Concomitant]
     Dosage: UNK
  9. LORTAB [Concomitant]
     Dosage: 5 MG, AS NEEDED
     Route: 048
  10. TRIMETHOPRIM [Concomitant]
     Dosage: 100 MG, DAILY
     Route: 048
  11. TRIAZOLAM [Concomitant]
     Dosage: 1 MG, 3X/DAY
     Route: 048
  12. LORATADINE [Concomitant]
     Dosage: UNK
  13. OMEPRAZOLE [Concomitant]
     Dosage: 20 MG, DAILY

REACTIONS (5)
  - INSOMNIA [None]
  - NIGHTMARE [None]
  - DIZZINESS [None]
  - DYSKINESIA [None]
  - DRUG INEFFECTIVE [None]
